FAERS Safety Report 15042500 (Version 3)
Quarter: 2019Q3

REPORT INFORMATION
  Report Type: Spontaneous
  Country: JP (occurrence: JP)
  Receive Date: 20180621
  Receipt Date: 20190719
  Transmission Date: 20191004
  Serious: Yes (Death, Hospitalization)
  Sender: FDA-Public Use
  Company Number: JP-ACTELION-A-CH2018-171420

PATIENT
  Age: 72 Year
  Sex: Female

DRUGS (25)
  1. ALDACTONE A [Concomitant]
     Active Substance: SPIRONOLACTONE
  2. MAGMITT [Concomitant]
     Active Substance: MAGNESIUM OXIDE
  3. PREDONINE [Concomitant]
     Active Substance: PREDNISOLONE
  4. PROCYLIN [Concomitant]
     Active Substance: BERAPROST SODIUM
  5. FOLIAMIN [Concomitant]
     Active Substance: FOLIC ACID
  6. LASIX [Suspect]
     Active Substance: FUROSEMIDE
     Indication: LEFT VENTRICULAR FAILURE
     Dosage: 40 MG, QD
     Route: 048
     Dates: start: 20141027, end: 20180426
  7. FERROMIA [Concomitant]
     Active Substance: SODIUM FERROUS CITRATE
  8. LIPITOR [Concomitant]
     Active Substance: ATORVASTATIN CALCIUM
  9. RELVAR [Concomitant]
     Active Substance: FLUTICASONE FUROATE\VILANTEROL TRIFENATATE
  10. LANTUS [Concomitant]
     Active Substance: INSULIN GLARGINE
  11. WARFARIN [Concomitant]
     Active Substance: WARFARIN
  12. REBAMIPIDE [Concomitant]
     Active Substance: REBAMIPIDE
  13. CELECOX [Concomitant]
     Active Substance: CELECOXIB
  14. PURSENNID [Concomitant]
  15. BONOTEO [Concomitant]
     Active Substance: MINODRONIC ACID
  16. OPSUMIT [Suspect]
     Active Substance: MACITENTAN
     Indication: PULMONARY ARTERIAL HYPERTENSION
     Dosage: 10 MG, QD
     Route: 048
     Dates: start: 20180329, end: 20180423
  17. PARIET [Concomitant]
     Active Substance: RABEPRAZOLE SODIUM
  18. ROZEREM [Concomitant]
     Active Substance: RAMELTEON
  19. HUMALOG [Concomitant]
     Active Substance: INSULIN LISPRO
  20. REVATIO [Concomitant]
     Active Substance: SILDENAFIL CITRATE
  21. IMURAN [Concomitant]
     Active Substance: AZATHIOPRINE
  22. AMLODIPINE [Concomitant]
     Active Substance: AMLODIPINE BESYLATE
  23. ISCOTIN [Concomitant]
     Active Substance: ISONIAZID
  24. ONEALFA [Concomitant]
     Active Substance: ALFACALCIDOL
  25. OXYGEN. [Concomitant]
     Active Substance: OXYGEN

REACTIONS (9)
  - Dyspnoea [Not Recovered/Not Resolved]
  - Headache [Recovered/Resolved]
  - Pulmonary oedema [Fatal]
  - Renal impairment [Not Recovered/Not Resolved]
  - Oedema [Not Recovered/Not Resolved]
  - Pyrexia [Unknown]
  - Anaemia [Not Recovered/Not Resolved]
  - Upper airway obstruction [Not Recovered/Not Resolved]
  - Pharyngeal oedema [Not Recovered/Not Resolved]

NARRATIVE: CASE EVENT DATE: 20180329
